FAERS Safety Report 18225237 (Version 1)
Quarter: 2020Q3

REPORT INFORMATION
  Report Type: Report from Study
  Country: IR (occurrence: IR)
  Receive Date: 20200903
  Receipt Date: 20200903
  Transmission Date: 20201103
  Serious: Yes (Death, Hospitalization, Other)
  Sender: FDA-Public Use
  Company Number: IR-BION-008986

PATIENT
  Age: 16 Year
  Sex: Female

DRUGS (1)
  1. IBUPROFEN. [Suspect]
     Active Substance: IBUPROFEN
     Dosage: AMOUNT OF DRUG WAS UNDER 200 MG/KG
     Route: 048

REACTIONS (13)
  - Drug abuse [Fatal]
  - Cardiac arrest [Fatal]
  - Acute kidney injury [Unknown]
  - Toxicity to various agents [Fatal]
  - Agitation [Unknown]
  - Heart rate increased [Unknown]
  - Respiratory acidosis [Unknown]
  - Blood pressure decreased [Unknown]
  - Seizure [Unknown]
  - Acid base balance abnormal [Unknown]
  - Altered state of consciousness [Unknown]
  - Hormone level abnormal [Unknown]
  - Intentional overdose [Fatal]
